FAERS Safety Report 5331112-6 (Version None)
Quarter: 2007Q2

REPORT INFORMATION
  Report Type: 
  Country: None (occurrence: None)
  Receive Date: 20070522
  Receipt Date: 20070511
  Transmission Date: 20071010
  Serious: Yes (Other)
  Sender: FDA-Public Use
  Company Number: SE-JNJFOC-20070503537

PATIENT
  Age: 55 Year
  Sex: Female

DRUGS (6)
  1. REMICADE [Suspect]
     Indication: RHEUMATOID ARTHRITIS
     Route: 042
  2. OVESTERIN [Concomitant]
  3. FOLACIN [Concomitant]
  4. EMGESAN [Concomitant]
  5. METHOTREXATE [Concomitant]
  6. ORUDIS [Concomitant]

REACTIONS (2)
  - DRUG EFFECT DECREASED [None]
  - PARKINSON'S DISEASE [None]
